FAERS Safety Report 15280248 (Version 1)
Quarter: 2018Q3

REPORT INFORMATION
  Report Type: Spontaneous
  Country: US (occurrence: US)
  Receive Date: 20180730
  Receipt Date: 20180730
  Transmission Date: 20181010
  Serious: Yes (Other)
  Sender: FDA-Public Use
  Company Number: None

PATIENT
  Age: 60 Year
  Sex: Female
  Weight: 54.45 kg

DRUGS (21)
  1. LEVOTHYROXINE. [Concomitant]
     Active Substance: LEVOTHYROXINE
  2. LIOTHYRONINE [Concomitant]
     Active Substance: LIOTHYRONINE
  3. ESTRACE [Concomitant]
     Active Substance: ESTRADIOL
  4. MODAFINIL. [Concomitant]
     Active Substance: MODAFINIL
  5. DIVALPROIC ACID [Concomitant]
  6. MAGNESIUM ULTRA [Concomitant]
  7. OMEGA 3 [Concomitant]
     Active Substance: OMEGA-3 FATTY ACIDS
  8. SUMATRIPTAN. [Concomitant]
     Active Substance: SUMATRIPTAN
  9. RESTASIS [Concomitant]
     Active Substance: CYCLOSPORINE
  10. FOLIC ACID. [Concomitant]
     Active Substance: FOLIC ACID
  11. AZELASTINE NASAL SPRAY [Concomitant]
     Active Substance: AZELASTINE
  12. OLMESARTAN MEDOXOMIL 40MG TABLETS [Suspect]
     Active Substance: OLMESARTAN MEDOXOMIL
     Indication: GLOMERULAR VASCULAR DISORDER
     Dosage: ?          QUANTITY:1 TABLET(S);?
     Route: 048
     Dates: start: 20171101, end: 20180723
  13. CEVIMELINE. [Concomitant]
     Active Substance: CEVIMELINE
  14. VENLAFAXINE [Concomitant]
     Active Substance: VENLAFAXINE HYDROCHLORIDE
  15. PROGESTERONE MICRONIZED [Concomitant]
  16. OLMESARTAN MEDOXOMIL 40MG TABLETS [Suspect]
     Active Substance: OLMESARTAN MEDOXOMIL
     Indication: PROTEINURIA
     Dosage: ?          QUANTITY:1 TABLET(S);?
     Route: 048
     Dates: start: 20171101, end: 20180723
  17. SPIRONOLACTONE. [Concomitant]
     Active Substance: SPIRONOLACTONE
  18. LOSARTAN. [Concomitant]
     Active Substance: LOSARTAN
  19. FLUTICOSONE NASAL SPRAY [Concomitant]
  20. AZELASTINE EYE DROPS [Concomitant]
  21. TRIPLE FIBER SUPPLEMENT [Concomitant]

REACTIONS (6)
  - Weight decreased [None]
  - Fatigue [None]
  - Coeliac disease [None]
  - Diarrhoea [None]
  - Headache [None]
  - Dehydration [None]

NARRATIVE: CASE EVENT DATE: 20171101
